FAERS Safety Report 9472539 (Version 2)
Quarter: 2013Q4

REPORT INFORMATION
  Report Type: Report from Study
  Country: RW (occurrence: RW)
  Receive Date: 20130823
  Receipt Date: 20131003
  Transmission Date: 20140711
  Serious: Yes (Death, Hospitalization, Other)
  Sender: FDA-Public Use
  Company Number: PHHY2013RW091092

PATIENT
  Age: 51 Year
  Sex: Male

DRUGS (1)
  1. GLIVEC [Suspect]
     Indication: CHRONIC MYELOID LEUKAEMIA
     Dosage: 400 MG, DAILY
     Route: 048
     Dates: start: 20110131

REACTIONS (10)
  - Death [Fatal]
  - Splenomegaly [Unknown]
  - Respiratory distress [Unknown]
  - White blood cell count increased [Unknown]
  - Ascites [Unknown]
  - General physical health deterioration [Unknown]
  - Chronic myeloid leukaemia [Unknown]
  - Malignant neoplasm progression [Unknown]
  - Blast crisis in myelogenous leukaemia [Unknown]
  - Drug resistance [Unknown]
